FAERS Safety Report 24558794 (Version 2)
Quarter: 2024Q4

REPORT INFORMATION
  Report Type: Report from Study
  Country: US (occurrence: US)
  Receive Date: 20241029
  Receipt Date: 20241220
  Transmission Date: 20250115
  Serious: No
  Sender: ROCHE
  Company Number: US-ROCHE-3563123

PATIENT
  Age: 41 Year
  Sex: Male
  Weight: 86.18 kg

DRUGS (4)
  1. OCREVUS [Suspect]
     Active Substance: OCRELIZUMAB
     Indication: Relapsing-remitting multiple sclerosis
     Dosage: YES
     Route: 065
     Dates: start: 20180307, end: 20190307
  2. OCREVUS [Suspect]
     Active Substance: OCRELIZUMAB
     Dosage: YES
     Route: 042
     Dates: start: 2018
  3. OCREVUS [Suspect]
     Active Substance: OCRELIZUMAB
     Route: 042
     Dates: start: 2019
  4. OCREVUS [Suspect]
     Active Substance: OCRELIZUMAB
     Dosage: SUBSEQUENT DOSE ON 14-JUN-2024
     Route: 065
     Dates: start: 20190307, end: 20190307

REACTIONS (11)
  - Fatigue [Not Recovered/Not Resolved]
  - Rhinorrhoea [Not Recovered/Not Resolved]
  - Secretion discharge [Not Recovered/Not Resolved]
  - Diarrhoea [Not Recovered/Not Resolved]
  - Depression [Not Recovered/Not Resolved]
  - B-lymphocyte count decreased [Not Recovered/Not Resolved]
  - COVID-19 [Recovered/Resolved]
  - Nasopharyngitis [Recovering/Resolving]
  - Ankle fracture [Recovering/Resolving]
  - Tibia fracture [Recovering/Resolving]
  - Fibula fracture [Recovering/Resolving]

NARRATIVE: CASE EVENT DATE: 20200101
